FAERS Safety Report 16839335 (Version 1)
Quarter: 2019Q4

REPORT INFORMATION
  Report Type: Spontaneous
  Country: US (occurrence: US)
  Receive Date: 20190921
  Receipt Date: 20190921
  Transmission Date: 20200122
  Serious: No
  Sender: FDA-Public Use
  Company Number: None

PATIENT
  Age: 67 Year
  Sex: Female
  Weight: 50.4 kg

DRUGS (4)
  1. TYLENOL [Concomitant]
     Active Substance: ACETAMINOPHEN
  2. ADVIL [Concomitant]
     Active Substance: IBUPROFEN
  3. PREGABALIN. [Suspect]
     Active Substance: PREGABALIN
     Indication: TRIGEMINAL NEURALGIA
     Dosage: ?          QUANTITY:180 CAPSULE(S);?
     Dates: start: 20190901, end: 20190913
  4. VITAMIN D3 [Concomitant]
     Active Substance: CHOLECALCIFEROL

REACTIONS (15)
  - Aphasia [None]
  - Exercise tolerance decreased [None]
  - Nausea [None]
  - Decreased appetite [None]
  - Product substitution issue [None]
  - Memory impairment [None]
  - Neuralgia [None]
  - Depression [None]
  - Dizziness [None]
  - Joint stiffness [None]
  - Thinking abnormal [None]
  - Economic problem [None]
  - Therapeutic product effect decreased [None]
  - Asthenia [None]
  - Arthralgia [None]

NARRATIVE: CASE EVENT DATE: 20190901
